FAERS Safety Report 20339823 (Version 3)
Quarter: 2022Q1

REPORT INFORMATION
  Report Type: Spontaneous
  Country: IT (occurrence: IT)
  Receive Date: 20220117
  Receipt Date: 20220224
  Transmission Date: 20220423
  Serious: Yes (Death, Other)
  Sender: FDA-Public Use
  Company Number: None

PATIENT
  Age: 67 Year
  Sex: Female
  Weight: 57 kg

DRUGS (1)
  1. NIVOLUMAB [Suspect]
     Active Substance: NIVOLUMAB
     Indication: Neoplasm progression
     Dosage: 240 MILLIGRAM
     Route: 065
     Dates: start: 20211112, end: 20211112

REACTIONS (2)
  - Atrioventricular block complete [Fatal]
  - Myocarditis [Fatal]

NARRATIVE: CASE EVENT DATE: 20211207
